FAERS Safety Report 5053067-4 (Version None)
Quarter: 2006Q3

REPORT INFORMATION
  Report Type: 
  Country: None (occurrence: None)
  Receive Date: 20060717
  Receipt Date: 20060706
  Transmission Date: 20061208
  Serious: Yes (Other)
  Sender: FDA-Public Use
  Company Number: JP-ABBOTT-06P-087-0337662-00

PATIENT
  Age: 62 Year
  Sex: Female

DRUGS (7)
  1. CLARITHROMYCIN [Suspect]
     Indication: HELICOBACTER INFECTION
     Dates: start: 19991112
  2. LANSOPRAZOLE [Suspect]
     Indication: HELICOBACTER INFECTION
     Dates: start: 19991112
  3. METHOTREXATE [Suspect]
     Indication: RHEUMATOID ARTHRITIS
  4. AMOXICILLIN [Suspect]
     Indication: HELICOBACTER INFECTION
     Dates: start: 19991112
  5. PENICILLAMINE [Concomitant]
     Indication: RHEUMATOID ARTHRITIS
  6. GOLD SALT [Concomitant]
     Indication: RHEUMATOID ARTHRITIS
  7. STEROIDS [Concomitant]
     Indication: RHEUMATOID ARTHRITIS

REACTIONS (3)
  - ALANINE AMINOTRANSFERASE INCREASED [None]
  - ASPARTATE AMINOTRANSFERASE INCREASED [None]
  - RHEUMATOID ARTHRITIS [None]
